FAERS Safety Report 10248681 (Version 1)
Quarter: 2014Q2

REPORT INFORMATION
  Report Type: Other
  Country: US (occurrence: US)
  Receive Date: 20140620
  Receipt Date: 20140620
  Transmission Date: 20141212
  Serious: Yes (Death, Congenital Anomaly, Other)
  Sender: FDA-Public Use
  Company Number: US-LUPIN PHARMACEUTICALS INC.-2014-01161

PATIENT
  Sex: 0

DRUGS (4)
  1. LAMIVUDINE AND ZIDOVUDINE [Suspect]
     Indication: PRODUCT USED FOR UNKNOWN INDICATION
     Route: 064
     Dates: start: 20120810, end: 20120905
  2. KALETRA [Suspect]
     Indication: PRODUCT USED FOR UNKNOWN INDICATION
     Route: 064
     Dates: start: 20120810, end: 20120905
  3. ALUVIA [Suspect]
     Indication: PRODUCT USED FOR UNKNOWN INDICATION
     Route: 064
     Dates: start: 20120810, end: 20120905
  4. LPV/R [Suspect]
     Indication: PRODUCT USED FOR UNKNOWN INDICATION
     Route: 064
     Dates: start: 20120810, end: 20120905

REACTIONS (6)
  - Arnold-Chiari malformation [Fatal]
  - Cerebral dysgenesis [Fatal]
  - Foetal exposure during pregnancy [Fatal]
  - Maternal drugs affecting foetus [None]
  - Congenital spinal cord anomaly [None]
  - Abortion induced [None]
